FAERS Safety Report 4300541-1 (Version None)
Quarter: 2004Q1

REPORT INFORMATION
  Report Type: 
  Country: None (occurrence: None)
  Receive Date: 20040217
  Receipt Date: 20040202
  Transmission Date: 20041129
  Serious: Yes (Hospitalization, Other)
  Sender: FDA-Public Use
  Company Number: 2004003778

PATIENT
  Age: 21 Year
  Sex: Female
  Weight: 74 kg

DRUGS (4)
  1. NEURONTIN [Suspect]
     Indication: PREOPERATIVE CARE
     Dosage: 1600 MG (BID)
     Dates: start: 20011201
  2. HYRDOCORTISONE (HYDROCORTISONE) [Concomitant]
  3. PARACETAMOL (PARACETAMOL) [Concomitant]
  4. HOMEOPATIC PREPARATION [Concomitant]

REACTIONS (12)
  - ASTHENIA [None]
  - EPILEPSY [None]
  - HEADACHE [None]
  - MENINGITIS [None]
  - PLATELET COUNT DECREASED [None]
  - POST PROCEDURAL COMPLICATION [None]
  - SOMNOLENCE [None]
  - STAPHYLOCOCCAL INFECTION [None]
  - TINNITUS [None]
  - URINARY INCONTINENCE [None]
  - VERTIGO [None]
  - WEIGHT INCREASED [None]
